FAERS Safety Report 12933940 (Version 1)
Quarter: 2016Q4

REPORT INFORMATION
  Report Type: Spontaneous
  Country: US (occurrence: US)
  Receive Date: 20161111
  Receipt Date: 20161111
  Transmission Date: 20170207
  Serious: No
  Sender: FDA-Public Use
  Company Number: US-ELI_LILLY_AND_COMPANY-US201607010142

PATIENT
  Sex: Female
  Weight: 101.6 kg

DRUGS (3)
  1. CYMBALTA [Suspect]
     Active Substance: DULOXETINE HYDROCHLORIDE
     Indication: MAJOR DEPRESSION
     Dosage: 60 MG, QD
     Route: 048
     Dates: end: 201506
  2. LISINOPRIL. [Concomitant]
     Active Substance: LISINOPRIL
     Indication: PRODUCT USED FOR UNKNOWN INDICATION
     Dosage: UNK, UNKNOWN
     Route: 065
  3. MECLIZINE [Concomitant]
     Active Substance: MECLIZINE HYDROCHLORIDE
     Indication: PRODUCT USED FOR UNKNOWN INDICATION
     Dosage: UNK, UNKNOWN
     Route: 065

REACTIONS (19)
  - Tremor [Unknown]
  - Vertigo [Unknown]
  - Anxiety [Unknown]
  - Drug withdrawal syndrome [Unknown]
  - Irritability [Unknown]
  - Nausea [Recovered/Resolved]
  - Hyperhidrosis [Unknown]
  - Headache [Unknown]
  - Asthenia [Unknown]
  - Paraesthesia [Unknown]
  - Diarrhoea [Unknown]
  - Insomnia [Unknown]
  - Tinnitus [Unknown]
  - Dysphoria [Unknown]
  - Sensory disturbance [Unknown]
  - Fatigue [Unknown]
  - Dizziness [Recovered/Resolved]
  - Confusional state [Unknown]
  - Lethargy [Unknown]
